FAERS Safety Report 23047337 (Version 2)
Quarter: 2023Q4

REPORT INFORMATION
  Report Type: Report from Study
  Country: US (occurrence: US)
  Receive Date: 20231010
  Receipt Date: 20231012
  Transmission Date: 20240109
  Serious: Yes (Hospitalization, Other)
  Sender: FDA-Public Use
  Company Number: US-ABBVIE-5442425

PATIENT
  Sex: Male
  Weight: 96.615 kg

DRUGS (9)
  1. HUMIRA [Suspect]
     Active Substance: ADALIMUMAB
     Indication: Crohn^s disease
     Dosage: FORM STRENGTH: 40 MG
     Route: 058
     Dates: start: 2017
  2. ATORVASTATIN [Concomitant]
     Active Substance: ATORVASTATIN
     Indication: Blood cholesterol
  3. TADALAFIL [Concomitant]
     Active Substance: TADALAFIL
     Indication: Product used for unknown indication
  4. LANTUS [Concomitant]
     Active Substance: INSULIN GLARGINE
     Indication: Blood glucose abnormal
  5. NOVOLOG [Concomitant]
     Active Substance: INSULIN ASPART
     Indication: Blood pressure management
  6. HYDROCHLOROTHIAZIDE [Concomitant]
     Active Substance: HYDROCHLOROTHIAZIDE
     Indication: Blood pressure measurement
  7. POTASSIUM CHLORIDE [Concomitant]
     Active Substance: POTASSIUM CHLORIDE
     Indication: Product used for unknown indication
  8. PIOGLITAZONE [Concomitant]
     Active Substance: PIOGLITAZONE
     Indication: Blood glucose abnormal
  9. TAMSULOSIN [Concomitant]
     Active Substance: TAMSULOSIN
     Indication: Prostatic disorder

REACTIONS (7)
  - Cholecystectomy [Recovering/Resolving]
  - Nasopharyngitis [Not Recovered/Not Resolved]
  - Small intestinal resection [Recovering/Resolving]
  - Post procedural haemorrhage [Unknown]
  - Post procedural infection [Recovered/Resolved]
  - Small intestinal resection [Recovered/Resolved]
  - Appendicectomy [Recovering/Resolving]

NARRATIVE: CASE EVENT DATE: 20170101
